FAERS Safety Report 21005447 (Version 1)
Quarter: 2022Q2

REPORT INFORMATION
  Report Type: Spontaneous
  Country: US (occurrence: None)
  Receive Date: 20220624
  Receipt Date: 20220624
  Transmission Date: 20220721
  Serious: No
  Sender: FDA-Public Use
  Company Number: 2022A225581

PATIENT
  Age: 29833 Day
  Sex: Male

DRUGS (1)
  1. PULMICORT FLEXHALER [Suspect]
     Active Substance: BUDESONIDE
     Indication: Asthma
     Route: 055

REACTIONS (3)
  - Hypoacusis [Unknown]
  - Device delivery system issue [Unknown]
  - Intentional device use issue [Unknown]

NARRATIVE: CASE EVENT DATE: 20220617
